FAERS Safety Report 9670394 (Version 2)
Quarter: 2013Q4

REPORT INFORMATION
  Report Type: Spontaneous
  Country: US (occurrence: US)
  Receive Date: 20131105
  Receipt Date: 20131105
  Transmission Date: 20140711
  Serious: Yes (Other)
  Sender: FDA-Public Use
  Company Number: US-PFIZER INC-2013311342

PATIENT
  Age: 9 Year
  Sex: Male

DRUGS (5)
  1. CARBOPLATIN [Suspect]
     Indication: ASTROCYTOMA, LOW GRADE
     Dosage: UNK
     Dates: start: 19970901, end: 19971101
  2. VINCRISTINE [Suspect]
     Indication: ASTROCYTOMA, LOW GRADE
     Dosage: UNK
     Dates: start: 19970901, end: 19971101
  3. CYCLOPHOSPHAMIDE [Suspect]
     Indication: GLIOSARCOMA
     Dosage: UNK
     Dates: start: 19990604
  4. THIOTEPA [Suspect]
     Indication: GLIOSARCOMA
     Dosage: UNK
     Dates: start: 19990604
  5. TEMOZOLOMIDE [Suspect]
     Indication: GLIOSARCOMA
     Dosage: UNK
     Dates: start: 19990905, end: 19991105

REACTIONS (5)
  - Neutropenia [Recovered/Resolved]
  - Thrombocytopenia [Recovered/Resolved]
  - Anaemia [Recovered/Resolved]
  - Immunosuppression [Recovered/Resolved]
  - Infection [Recovered/Resolved]
